FAERS Safety Report 12117789 (Version 1)
Quarter: 2016Q1

REPORT INFORMATION
  Report Type: Spontaneous
  Country: US (occurrence: US)
  Receive Date: 20160226
  Receipt Date: 20160226
  Transmission Date: 20160526
  Serious: Yes (Other)
  Sender: FDA-Public Use
  Company Number: US-ROCHE-1715848

PATIENT
  Sex: Male

DRUGS (1)
  1. XOLAIR [Suspect]
     Active Substance: OMALIZUMAB
     Indication: ASTHMA
     Route: 058
     Dates: start: 20150923, end: 201602

REACTIONS (13)
  - Headache [Unknown]
  - Photopsia [Unknown]
  - Hypertension [Unknown]
  - Irritable bowel syndrome [Unknown]
  - Nasal polyps [Unknown]
  - Sleep apnoea syndrome [Unknown]
  - Visual impairment [Unknown]
  - Seroma [Unknown]
  - Depression [Unknown]
  - Affective disorder [Unknown]
  - Anxiety [Unknown]
  - Respiratory disorder [Unknown]
  - Cough [Unknown]
